FAERS Safety Report 16847030 (Version 2)
Quarter: 2020Q3

REPORT INFORMATION
  Report Type: Spontaneous
  Country: US (occurrence: US)
  Receive Date: 20190924
  Receipt Date: 20200820
  Transmission Date: 20201102
  Serious: Yes (Other)
  Sender: FDA-Public Use
  Company Number: US-GILEAD-2019-0429491

PATIENT
  Age: 64 Year
  Sex: Female
  Weight: 49.89 kg

DRUGS (45)
  1. GENVOYA [Concomitant]
     Active Substance: COBICISTAT\ELVITEGRAVIR\EMTRICITABINE\TENOFOVIR ALAFENAMIDE FUMARATE
  2. BUPROPION. [Concomitant]
     Active Substance: BUPROPION
  3. DEXAMETHASONE. [Concomitant]
     Active Substance: DEXAMETHASONE
  4. VIREAD [Suspect]
     Active Substance: TENOFOVIR DISOPROXIL FUMARATE
     Indication: HIV INFECTION
     Dosage: UNK
     Route: 048
     Dates: start: 20170601
  5. ZIAGEN [Concomitant]
     Active Substance: ABACAVIR SULFATE
  6. ACETAMINOPHEN. [Concomitant]
     Active Substance: ACETAMINOPHEN
  7. PANTOPRAZOLE [Concomitant]
     Active Substance: PANTOPRAZOLE
  8. EPINEPHRINE. [Concomitant]
     Active Substance: EPINEPHRINE
  9. ROCEPHINE [Concomitant]
     Active Substance: CEFTRIAXONE SODIUM
  10. CEFTRIAXONE. [Concomitant]
     Active Substance: CEFTRIAXONE
  11. AMBIEN [Concomitant]
     Active Substance: ZOLPIDEM TARTRATE
  12. TRUVADA [Suspect]
     Active Substance: EMTRICITABINE\TENOFOVIR DISOPROXIL FUMARATE
     Indication: HIV INFECTION
     Dosage: UNK
     Route: 048
     Dates: start: 2004, end: 2005
  13. ESTRADIOL. [Concomitant]
     Active Substance: ESTRADIOL
  14. VANCOMYCIN [Concomitant]
     Active Substance: VANCOMYCIN
  15. CEFADROXIL. [Concomitant]
     Active Substance: CEFADROXIL
  16. FLEXERIL [CEFIXIME] [Concomitant]
     Active Substance: CEFIXIME
  17. ATORVASTATIN [Concomitant]
     Active Substance: ATORVASTATIN
  18. SUSTIVA [Concomitant]
     Active Substance: EFAVIRENZ
  19. MAGNESIUM SULPHATE [MAGNESIUM SULFATE] [Concomitant]
     Active Substance: MAGNESIUM SULFATE
  20. ARIPIPRAZOLE. [Concomitant]
     Active Substance: ARIPIPRAZOLE
  21. LOVAZA [Concomitant]
     Active Substance: OMEGA-3-ACID ETHYL ESTERS
  22. ALPRAZOLAM. [Concomitant]
     Active Substance: ALPRAZOLAM
  23. DECADRON [Concomitant]
     Active Substance: DEXAMETHASONE
  24. ATRIPLA [Suspect]
     Active Substance: EFAVIRENZ\EMTRICITABINE\TENOFOVIR DISOPROXIL FUMARATE
     Indication: HIV INFECTION
     Dosage: UNK
     Route: 048
     Dates: start: 201210, end: 2017
  25. METOCLOPRAMIDE. [Concomitant]
     Active Substance: METOCLOPRAMIDE
  26. DEXAMETHASONE. [Concomitant]
     Active Substance: DEXAMETHASONE
  27. CRESTOR [Concomitant]
     Active Substance: ROSUVASTATIN CALCIUM
  28. ZOLPIDEM TARTRATE. [Concomitant]
     Active Substance: ZOLPIDEM TARTRATE
  29. TIVICAY [Concomitant]
     Active Substance: DOLUTEGRAVIR SODIUM
  30. TRIUMEQ [Concomitant]
     Active Substance: ABACAVIR SULFATE\DOLUTEGRAVIR SODIUM\LAMIVUDINE
  31. POTASSIUM BICARBONATE. [Concomitant]
     Active Substance: POTASSIUM BICARBONATE
  32. INSULIN [Concomitant]
     Active Substance: INSULIN NOS
  33. ENOXAPARIN [Concomitant]
     Active Substance: ENOXAPARIN
  34. IPRATROPIUM [Concomitant]
     Active Substance: IPRATROPIUM
  35. ROSUVASTATIN. [Concomitant]
     Active Substance: ROSUVASTATIN
  36. CELEXA [CELECOXIB] [Concomitant]
     Active Substance: CELECOXIB
  37. TRAZODONE [Concomitant]
     Active Substance: TRAZODONE HYDROCHLORIDE
  38. CALCIUM GLUCONATE. [Concomitant]
     Active Substance: CALCIUM GLUCONATE
  39. LEVOFLOXACIN. [Concomitant]
     Active Substance: LEVOFLOXACIN
  40. EPIVIR [Concomitant]
     Active Substance: LAMIVUDINE
  41. CEFEPIME [Concomitant]
     Active Substance: CEFEPIME HYDROCHLORIDE
  42. MEROPENEM. [Concomitant]
     Active Substance: MEROPENEM
  43. ZOSYN [Concomitant]
     Active Substance: PIPERACILLIN SODIUM\TAZOBACTAM SODIUM
  44. PEPCID [Concomitant]
     Active Substance: FAMOTIDINE
  45. FUROSEMIDE. [Concomitant]
     Active Substance: FUROSEMIDE

REACTIONS (13)
  - Quality of life decreased [Unknown]
  - Anhedonia [Not Recovered/Not Resolved]
  - Osteoporosis [Unknown]
  - Fatigue [Not Recovered/Not Resolved]
  - Mobility decreased [Not Recovered/Not Resolved]
  - Emotional distress [Not Recovered/Not Resolved]
  - End stage renal disease [Unknown]
  - Anxiety [Not Recovered/Not Resolved]
  - Loss of personal independence in daily activities [Unknown]
  - Pain [Not Recovered/Not Resolved]
  - Decreased activity [Unknown]
  - Acute kidney injury [Not Recovered/Not Resolved]
  - Osteopenia [Not Recovered/Not Resolved]

NARRATIVE: CASE EVENT DATE: 20150409
